FAERS Safety Report 5896906-7 (Version None)
Quarter: 2008Q3

REPORT INFORMATION
  Report Type: 
  Country: None (occurrence: None)
  Receive Date: 20080924
  Receipt Date: 20080919
  Transmission Date: 20090109
  Serious: Yes (Life-Threatening)
  Sender: FDA-Public Use
  Company Number: IN-PFIZER INC-2008079048

PATIENT
  Sex: Female

DRUGS (4)
  1. AROMASIN [Suspect]
     Indication: BREAST CANCER
     Route: 048
     Dates: start: 20070905
  2. TRIPTORELIN [Suspect]
     Indication: BREAST CANCER
     Route: 030
     Dates: start: 20070725
  3. ESCITALOPRAM [Concomitant]
     Indication: DEPRESSION
     Dates: start: 20071001
  4. CLONAZEPAM [Concomitant]
     Indication: DEPRESSION
     Dates: start: 20071001

REACTIONS (2)
  - DEPRESSION [None]
  - SUICIDE ATTEMPT [None]
